FAERS Safety Report 6702600-2 (Version None)
Quarter: 2010Q2

REPORT INFORMATION
  Report Type: 
  Country: None (occurrence: None)
  Receive Date: 20100429
  Receipt Date: 20100420
  Transmission Date: 20101027
  Serious: Yes (Other)
  Sender: FDA-Public Use
  Company Number: DE-PFIZER INC-2010049492

PATIENT
  Age: 67 Year
  Sex: Male

DRUGS (4)
  1. SORTIS [Suspect]
     Indication: HYPERCHOLESTEROLAEMIA
     Dosage: 20 MG/DAY
     Route: 048
  2. SORTIS [Suspect]
     Dosage: 40 MG/DAY
     Route: 048
  3. SORTIS [Suspect]
     Dosage: 20 MG/DAY
     Route: 048
  4. DELIX [Concomitant]
     Indication: HYPERTENSION

REACTIONS (1)
  - BLOOD TRIGLYCERIDES INCREASED [None]
